FAERS Safety Report 26062725 (Version 1)
Quarter: 2025Q4

REPORT INFORMATION
  Report Type: Spontaneous
  Country: EU (occurrence: EU)
  Receive Date: 20251119
  Receipt Date: 20251119
  Transmission Date: 20260118
  Serious: Yes (Other)
  Sender: ROCHE
  Company Number: EU-ROCHE-10000434517

PATIENT

DRUGS (4)
  1. OCREVUS [Suspect]
     Active Substance: OCRELIZUMAB
     Indication: Product used for unknown indication
     Dosage: DATES OF TREATMENT: DEC/2022, 09/OCT/2023, 09/APR/2024 AND 10/OCT/2024
     Route: 064
     Dates: start: 202206
  2. OCREVUS [Suspect]
     Active Substance: OCRELIZUMAB
     Dosage: DATES OF TREATMENT: DEC/2022, 09/OCT/2023, 09/APR/2024 AND 10/OCT/2024
     Route: 064
     Dates: start: 20250613
  3. BACLOFEN [Concomitant]
     Active Substance: BACLOFEN
     Route: 064
  4. SPIRONOLACTONE [Concomitant]
     Active Substance: SPIRONOLACTONE
     Route: 064

REACTIONS (3)
  - Foetal exposure during pregnancy [Unknown]
  - Dyspnoea [Unknown]
  - Patent ductus arteriosus [Unknown]
